FAERS Safety Report 6431175-0 (Version None)
Quarter: 2009Q4

REPORT INFORMATION
  Report Type: 
  Country: None (occurrence: None)
  Receive Date: 20091105
  Receipt Date: 20091105
  Transmission Date: 20100525
  Serious: Yes (Hospitalization)
  Sender: FDA-Public Use
  Company Number: None

PATIENT
  Age: 34 Year
  Sex: Male
  Weight: 98.4306 kg

DRUGS (13)
  1. BEVACUZUMAB [Suspect]
     Indication: GASTRIC CANCER
     Dosage: 750 MG EVERY 21 DAYS, IV
     Route: 042
     Dates: start: 20090415, end: 20091029
  2. DOCETAXEL [Suspect]
     Indication: GASTRIC CANCER
     Dosage: 150 MG EVERY 21 DAYS, IV
     Route: 042
     Dates: start: 20090415, end: 20091029
  3. OXALIPLATIN [Suspect]
     Indication: GASTRIC CANCER
     Dosage: 160 MG  EVERY 21 DAYS  IV
     Route: 042
     Dates: start: 20090415, end: 20091029
  4. ZYPREXA [Concomitant]
  5. ATIVAN [Concomitant]
  6. CARAFATE [Concomitant]
  7. PROCHLOPERAZINE [Concomitant]
  8. EMEND [Concomitant]
  9. TRIFOL [Concomitant]
  10. PROMETHAZINE [Concomitant]
  11. PERCOCET [Concomitant]
  12. DEXAMETHASONE [Concomitant]
  13. NEXIUM [Concomitant]

REACTIONS (9)
  - DISEASE PROGRESSION [None]
  - DIZZINESS [None]
  - DYSPHAGIA [None]
  - DYSPNOEA [None]
  - GASTRIC ULCER [None]
  - GASTRITIS EROSIVE [None]
  - HAEMOGLOBIN DECREASED [None]
  - TUMOUR HAEMORRHAGE [None]
  - UPPER GASTROINTESTINAL HAEMORRHAGE [None]
